FAERS Safety Report 5240291-0 (Version None)
Quarter: 2007Q1

REPORT INFORMATION
  Report Type: 
  Country: None (occurrence: None)
  Receive Date: 20061208
  Receipt Date: 20050203
  Transmission Date: 20070707
  Serious: Yes (Other)
  Sender: FDA-Public Use
  Company Number: 2005UW01940

PATIENT
  Age: 73 Year
  Sex: Female
  Weight: 56.245 kg

DRUGS (5)
  1. CRESTOR [Suspect]
     Indication: HYPERCHOLESTEROLAEMIA
     Dosage: 10 MG PO
     Route: 048
     Dates: start: 20041101
  2. LEVOTHYROXINE SODIUM [Concomitant]
  3. LISINOPRIL [Concomitant]
  4. TRIAMTERENE [Concomitant]
  5. NERVE PILL [Concomitant]

REACTIONS (2)
  - BLOOD PRESSURE DECREASED [None]
  - MUSCULOSKELETAL STIFFNESS [None]
